FAERS Safety Report 18143443 (Version 2)
Quarter: 2020Q4

REPORT INFORMATION
  Report Type: Spontaneous
  Country: US (occurrence: US)
  Receive Date: 20200812
  Receipt Date: 20201112
  Transmission Date: 20210113
  Serious: No
  Sender: FDA-Public Use
  Company Number: US-RIGEL PHARMACEUTICALS, INC.-2020FOS000275

PATIENT
  Age: 66 Year
  Sex: Male

DRUGS (1)
  1. TAVALISSE [Suspect]
     Active Substance: FOSTAMATINIB
     Indication: IMMUNE THROMBOCYTOPENIA
     Dosage: 100 MG, BID
     Route: 048
     Dates: start: 201810

REACTIONS (8)
  - Cardiac aneurysm [Unknown]
  - Oedema peripheral [Unknown]
  - Anxiety [Unknown]
  - Frequent bowel movements [Unknown]
  - Blood potassium increased [Unknown]
  - Pulmonary mass [Unknown]
  - Fatigue [Unknown]
  - Aortic aneurysm [Unknown]

NARRATIVE: CASE EVENT DATE: 202005
